FAERS Safety Report 4942180-5 (Version None)
Quarter: 2006Q1

REPORT INFORMATION
  Report Type: 
  Country: None (occurrence: None)
  Receive Date: 20060313
  Receipt Date: 20050823
  Transmission Date: 20060701
  Serious: No
  Sender: FDA-Public Use
  Company Number: US-GLAXOSMITHKLINE-A0571369A

PATIENT
  Age: 30 Year
  Sex: Male

DRUGS (1)
  1. NICORETTE (ORANGE) [Suspect]
     Dates: start: 20050818, end: 20050819

REACTIONS (3)
  - EPISTAXIS [None]
  - HEADACHE [None]
  - HYPERTENSION [None]
